FAERS Safety Report 11072896 (Version 3)
Quarter: 2015Q2

REPORT INFORMATION
  Report Type: Spontaneous
  Country: US (occurrence: US)
  Receive Date: 20150428
  Receipt Date: 20150611
  Transmission Date: 20150821
  Serious: No
  Sender: FDA-Public Use
  Company Number: US-PFIZER INC-2015139620

PATIENT
  Age: 81 Year
  Sex: Female
  Weight: 76 kg

DRUGS (8)
  1. METOPROLOL [Concomitant]
     Active Substance: METOPROLOL
     Dosage: UNK
  2. CLOPIDOGREL [Concomitant]
     Active Substance: CLOPIDOGREL BISULFATE
     Dosage: UNK
  3. ASPIRIN. [Concomitant]
     Active Substance: ASPIRIN
     Dosage: UNK
  4. PRILOSEC [Concomitant]
     Active Substance: OMEPRAZOLE MAGNESIUM
     Dosage: UNK
  5. SUTENT [Suspect]
     Active Substance: SUNITINIB MALATE
     Indication: METASTATIC RENAL CELL CARCINOMA
     Dosage: 50 MG DAILY, 28 DAYS ON, 14 DAYS OFF (CYCLIC)
     Dates: start: 20150409, end: 20150506
  6. LIPITOR [Concomitant]
     Active Substance: ATORVASTATIN CALCIUM
     Dosage: UNK
  7. LEVOTHYROXINE [Concomitant]
     Active Substance: LEVOTHYROXINE
     Dosage: UNK
  8. VITAMIN D [Concomitant]
     Active Substance: CHOLECALCIFEROL
     Dosage: UNK

REACTIONS (13)
  - Fatigue [Unknown]
  - Nausea [Unknown]
  - Chromaturia [Unknown]
  - Renal disorder [Unknown]
  - Oral pain [Unknown]
  - Pain [Unknown]
  - Urine odour abnormal [Unknown]
  - Asthenia [Unknown]
  - Hypertension [Unknown]
  - Weight increased [Unknown]
  - Dyspnoea [Unknown]
  - Diarrhoea [Unknown]
  - Yellow skin [Unknown]

NARRATIVE: CASE EVENT DATE: 2015
